FAERS Safety Report 10767269 (Version 1)
Quarter: 2015Q1

REPORT INFORMATION
  Report Type: Spontaneous
  Country: US (occurrence: US)
  Receive Date: 20150205
  Receipt Date: 20150205
  Transmission Date: 20150721
  Serious: No
  Sender: FDA-Public Use
  Company Number: US-GLAXOSMITHKLINE-A1086572A

PATIENT

DRUGS (2)
  1. MELPHALAN [Suspect]
     Active Substance: MELPHALAN
     Indication: STEM CELL TRANSPLANT
     Dosage: 200 MG/M2,  2 DOSES
     Route: 042
     Dates: start: 20130913, end: 20131001
  2. CYTOXAN [Suspect]
     Active Substance: CYCLOPHOSPHAMIDE
     Indication: STEM CELL TRANSPLANT
     Dosage: 1650 MG/M2, ONE TIME DOSE
     Route: 042
     Dates: start: 20130913, end: 20130913

REACTIONS (6)
  - Diarrhoea [Unknown]
  - Nausea [Unknown]
  - Febrile neutropenia [Unknown]
  - Vomiting [Unknown]
  - Orthostatic hypotension [Unknown]
  - Oesophagitis [Unknown]

NARRATIVE: CASE EVENT DATE: 20131007
